FAERS Safety Report 6821690-X (Version None)
Quarter: 2010Q3

REPORT INFORMATION
  Report Type: 
  Country: None (occurrence: None)
  Receive Date: 20100702
  Receipt Date: 20100330
  Transmission Date: 20110219
  Serious: Yes (Hospitalization)
  Sender: FDA-Public Use
  Company Number: 2010GW000486

PATIENT
  Age: 65 Year
  Sex: Female

DRUGS (1)
  1. ALDARA [Suspect]
     Indication: SKIN LESION
     Dosage: 5 PCT; TOP
     Route: 061
     Dates: start: 20100301, end: 20100301

REACTIONS (3)
  - BACTERAEMIA [None]
  - CELLULITIS [None]
  - NECROSIS [None]
